FAERS Safety Report 4494329-9 (Version None)
Quarter: 2004Q4

REPORT INFORMATION
  Report Type: 
  Country: None (occurrence: None)
  Receive Date: 20041102
  Receipt Date: 20041018
  Transmission Date: 20050328
  Serious: Yes (Hospitalization)
  Sender: FDA-Public Use
  Company Number: FR_041005034

PATIENT
  Age: 72 Year
  Sex: Male
  Weight: 65 kg

DRUGS (3)
  1. ZYPREXA [Suspect]
     Indication: DELIRIUM
     Dosage: 10 MG/1 DAY
     Dates: start: 20040826, end: 20040908
  2. VALIUM [Concomitant]
  3. FUNGIZONE [Concomitant]

REACTIONS (1)
  - HYPERTHERMIA [None]
